FAERS Safety Report 23072395 (Version 5)
Quarter: 2024Q2

REPORT INFORMATION
  Report Type: Report from Study
  Country: CA (occurrence: CA)
  Receive Date: 20231017
  Receipt Date: 20240412
  Transmission Date: 20240716
  Serious: Yes (Other)
  Sender: FDA-Public Use
  Company Number: CA-CELLTRION INC.-2023CA019619

PATIENT

DRUGS (17)
  1. TRASTUZUMAB [Suspect]
     Active Substance: TRASTUZUMAB
     Indication: Product used for unknown indication
     Route: 065
  2. PERJETA [Suspect]
     Active Substance: PERTUZUMAB
     Indication: HER2 positive breast cancer
     Dosage: 840 MG, 1 EVERY 3 WEEKS
     Route: 042
  3. PERJETA [Suspect]
     Active Substance: PERTUZUMAB
     Indication: HER2 positive breast cancer
     Dosage: 420 MG, 1 EVERY 3 WEEKS
     Route: 042
  4. ASPIRIN [Concomitant]
     Active Substance: ASPIRIN
     Route: 065
  5. ALVESCO [Concomitant]
     Active Substance: CICLESONIDE
     Route: 065
  6. APREPITANT [Concomitant]
     Active Substance: APREPITANT
  7. CELECOXIB [Concomitant]
     Active Substance: CELECOXIB
  8. DEXAMETHASONE [Concomitant]
     Active Substance: DEXAMETHASONE
     Route: 065
  9. FILGRASTIM [Concomitant]
     Active Substance: FILGRASTIM
  10. LETROZOLE [Concomitant]
     Active Substance: LETROZOLE
     Dosage: 2.5 MILLIGRAM
     Route: 065
  11. ONDANSETRON [Concomitant]
     Active Substance: ONDANSETRON
  12. PREGABALIN [Concomitant]
     Active Substance: PREGABALIN
     Indication: Pain in extremity
  13. PROCHLORPERAZINE [Concomitant]
     Active Substance: PROCHLORPERAZINE
  14. ALBUTEROL [Concomitant]
     Active Substance: ALBUTEROL
  15. SEMAGLUTIDE [Concomitant]
     Active Substance: SEMAGLUTIDE
  16. TAXOL [Concomitant]
     Active Substance: PACLITAXEL
  17. TRAZODONE [Concomitant]
     Active Substance: TRAZODONE HYDROCHLORIDE

REACTIONS (10)
  - Blood pressure systolic increased [Unknown]
  - Ear discomfort [Unknown]
  - Precancerous cells present [Unknown]
  - Weight increased [Unknown]
  - Acne [Unknown]
  - Arthralgia [Unknown]
  - Dyspnoea [Unknown]
  - Lung disorder [Unknown]
  - Palpitations [Unknown]
  - Weight decreased [Unknown]
